FAERS Safety Report 5879396-X (Version None)
Quarter: 2008Q3

REPORT INFORMATION
  Report Type: 
  Country: None (occurrence: None)
  Receive Date: 20080912
  Receipt Date: 20080905
  Transmission Date: 20090109
  Serious: Yes (Death)
  Sender: FDA-Public Use
  Company Number: B0532783A

PATIENT
  Age: 53 Year
  Sex: Female

DRUGS (8)
  1. PAXIL [Suspect]
     Indication: DEPRESSION
     Dosage: 10MG PER DAY
     Route: 048
     Dates: start: 20080710, end: 20080723
  2. PAXIL [Suspect]
     Dosage: 20MG PER DAY
     Route: 048
     Dates: start: 20080724, end: 20080730
  3. PAXIL [Suspect]
     Dosage: 30MG PER DAY
     Route: 048
     Dates: start: 20080731, end: 20080731
  4. PAXIL [Suspect]
     Dosage: 30MG PER DAY
     Route: 048
     Dates: start: 20080813
  5. RESTAS [Concomitant]
     Dosage: 2MG TWICE PER DAY
     Route: 048
  6. EVAMYL [Concomitant]
     Dosage: 1MG PER DAY
     Route: 048
  7. TETRAMIDE [Concomitant]
     Dosage: 10MG PER DAY
     Route: 048
  8. TETRAMIDE [Concomitant]
     Dosage: 10MG PER DAY
     Route: 048

REACTIONS (2)
  - DEATH [None]
  - OVERDOSE [None]
